FAERS Safety Report 15364959 (Version 3)
Quarter: 2018Q3

REPORT INFORMATION
  Report Type: Spontaneous
  Country: US (occurrence: US)
  Receive Date: 20180910
  Receipt Date: 20180915
  Transmission Date: 20181010
  Serious: No
  Sender: FDA-Public Use
  Company Number: US-JNJFOC-20180838072

PATIENT
  Age: 22 Year
  Sex: Male
  Weight: 68.04 kg

DRUGS (1)
  1. STELARA [Suspect]
     Active Substance: USTEKINUMAB
     Indication: CROHN^S DISEASE
     Dosage: 0520017786
     Route: 058
     Dates: start: 2017

REACTIONS (4)
  - Inappropriate schedule of drug administration [Unknown]
  - Off label use [Unknown]
  - Drug dose omission [Unknown]
  - Complication associated with device [Unknown]

NARRATIVE: CASE EVENT DATE: 2017
